FAERS Safety Report 8519089-3 (Version None)
Quarter: 2012Q3

REPORT INFORMATION
  Report Type: 
  Country: None (occurrence: None)
  Receive Date: 20120712
  Receipt Date: 20120712
  Transmission Date: 20120928
  Serious: Yes (Hospitalization)
  Sender: FDA-Public Use
  Company Number: None

PATIENT
  Age: 53 Year
  Sex: Male
  Weight: 102.7 kg

DRUGS (2)
  1. HYDROCHLOROTHIAZIDE [Suspect]
     Indication: HYPERTENSION
     Dosage: 50 MG EVERY DAY PO
     Route: 048
     Dates: start: 20050107, end: 20120629
  2. CLINDAMYCIN [Suspect]
     Indication: WOUND INFECTION
     Dosage: 300 MG QID PO
     Route: 048
     Dates: start: 20120620, end: 20120627

REACTIONS (8)
  - DIARRHOEA [None]
  - DIZZINESS [None]
  - FATIGUE [None]
  - DECREASED APPETITE [None]
  - ASTHENIA [None]
  - HYPOTENSION [None]
  - HYPOKALAEMIA [None]
  - GASTROENTERITIS VIRAL [None]
